FAERS Safety Report 8587678-6 (Version None)
Quarter: 2012Q3

REPORT INFORMATION
  Report Type: 
  Country: None (occurrence: None)
  Receive Date: 20120812
  Receipt Date: 20120806
  Transmission Date: 20120928
  Serious: Yes (Hospitalization, Other)
  Sender: FDA-Public Use
  Company Number: US-AMGEN-USASP2012049672

PATIENT
  Age: 65 Year
  Sex: Male

DRUGS (8)
  1. XGEVA [Suspect]
     Indication: PROPHYLAXIS
     Dates: start: 20110201
  2. PROVENGE [Concomitant]
  3. VITAMIN D [Concomitant]
     Dosage: 50000 IU, QWK
  4. CALCIUM [Concomitant]
  5. LISINOPRIL [Concomitant]
     Dosage: UNK
  6. FLOMAX [Concomitant]
  7. LEVOTHYROXINE SODIUM [Concomitant]
  8. MAGNESIUM [Concomitant]

REACTIONS (8)
  - BONE PAIN [None]
  - HYPOCALCAEMIA [None]
  - NAUSEA [None]
  - CHILLS [None]
  - BLOOD PRESSURE INCREASED [None]
  - CONVULSION [None]
  - HEADACHE [None]
  - SYNCOPE [None]
